FAERS Safety Report 9605232 (Version 4)
Quarter: 2014Q2

REPORT INFORMATION
  Report Type: Report from Study
  Country: CA (occurrence: CA)
  Receive Date: 20131008
  Receipt Date: 20140512
  Transmission Date: 20141212
  Serious: Yes (Other)
  Sender: FDA-Public Use
  Company Number: PHHY2013CA074615

PATIENT
  Age: 52 Year
  Sex: Female

DRUGS (4)
  1. GLEEVEC [Suspect]
     Indication: GASTROINTESTINAL STROMAL TUMOUR
     Dosage: 400 MG, QD
     Route: 048
     Dates: start: 20130621
  2. ASA [Concomitant]
     Dosage: 81 MG, UNK
  3. EZETIMIBE [Concomitant]
     Dosage: 10 MG, UNK
  4. CLONIDINE [Concomitant]
     Dosage: 0.025 MG, UNK

REACTIONS (17)
  - Ovarian cyst [Unknown]
  - Blister [Unknown]
  - Dysphonia [Unknown]
  - Blood iron decreased [Unknown]
  - Diarrhoea [Not Recovered/Not Resolved]
  - Eye swelling [Unknown]
  - Fatigue [Unknown]
  - Nausea [Unknown]
  - Urticaria [Unknown]
  - Pruritus [Unknown]
  - Decreased appetite [Unknown]
  - Weight decreased [Unknown]
  - Vomiting [Unknown]
  - Swelling face [Unknown]
  - Dysgeusia [Unknown]
  - Chills [Unknown]
  - Insomnia [Unknown]
